FAERS Safety Report 8954827 (Version 1)
Quarter: 2012Q4

REPORT INFORMATION
  Report Type: 
  Country: US (occurrence: US)
  Receive Date: 20121210
  Receipt Date: 20121210
  Transmission Date: 20130627
  Serious: Yes (Hospitalization)
  Sender: FDA-Public Use
  Company Number: US-SANOFI-AVENTIS-2012SA088646

PATIENT
  Age: 51 Year
  Sex: Female

DRUGS (4)
  1. LANTUS [Suspect]
     Dosage: Dose:15 unit(s)
     Route: 058
  2. LANTUS SOLOSTAR [Suspect]
     Indication: TYPE II DIABETES MELLITUS
     Dosage: Dose:15 unit(s)
     Route: 058
     Dates: start: 2011
  3. SOLOSTAR [Suspect]
     Indication: TYPE II DIABETES MELLITUS
     Dates: start: 2011
  4. HUMALOG [Suspect]
     Dosage: on a sliding scale.
     Route: 065

REACTIONS (3)
  - Hypoxia [Unknown]
  - Hyperglycaemia [Recovered/Resolved]
  - Visual impairment [Unknown]
